FAERS Safety Report 4313277-8 (Version None)
Quarter: 2004Q1

REPORT INFORMATION
  Report Type: 
  Country: None (occurrence: None)
  Receive Date: 20040305
  Receipt Date: 20040305
  Transmission Date: 20041129
  Serious: Yes (Other)
  Sender: FDA-Public Use
  Company Number: None

PATIENT
  Sex: Female

DRUGS (2)
  1. REMERON SOLTAB [Suspect]
     Indication: ANXIETY
     Dosage: 15-30 MG PO
     Route: 048
     Dates: start: 20040326
  2. REMERON SOLTAB [Suspect]
     Indication: INSOMNIA
     Dosage: 15-30 MG PO
     Route: 048
     Dates: start: 20040326

REACTIONS (2)
  - INSOMNIA [None]
  - RETCHING [None]
